FAERS Safety Report 10758731 (Version 1)
Quarter: 2015Q1

REPORT INFORMATION
  Report Type: Spontaneous
  Country: US (occurrence: None)
  Receive Date: 20150123
  Receipt Date: 20150123
  Transmission Date: 20150721
  Serious: Yes (Hospitalization)
  Sender: FDA-Public Use
  Company Number: TPA2012A09790

PATIENT
  Age: 23 Year
  Sex: Male

DRUGS (11)
  1. LISINOPRIL. [Concomitant]
     Active Substance: LISINOPRIL
  2. ACE INHIBITORS [Concomitant]
     Active Substance: UNSPECIFIED INGREDIENT
  3. HECTOROL (DOXERCALCIFEROL) [Concomitant]
  4. TYLENOL [Concomitant]
     Active Substance: ACETAMINOPHEN
  5. OMONTYS [Suspect]
     Active Substance: PEGINESATIDE
     Indication: NEPHROGENIC ANAEMIA
     Route: 042
     Dates: start: 20121128, end: 20121128
  6. PRAVASTATIN SODIUM. [Concomitant]
     Active Substance: PRAVASTATIN SODIUM
  7. SENSIPAR (CINACALCET HYDROCHLORIDE) [Concomitant]
  8. NEPHROVITE (ASCORBIC ACID, PYRIDOXINE HYDROCHLORIDE, BIOTIN, FOLIC ACID, THIAMINE HYDROCHLORIDE, CYANOCOBALAMIN, RIBOFLAVIN, NICOTINAMIDE, CALCIUM PANTOTHENATE) [Concomitant]
  9. PEPTO BISMOL (BISMUTH SUBSALICYLATE) [Concomitant]
  10. HYPERTONIC SALINE SOLUTION (SODIUM CHLORIDE) [Concomitant]
  11. RENVELA [Concomitant]
     Active Substance: SEVELAMER CARBONATE

REACTIONS (16)
  - Urticaria [None]
  - Malaise [None]
  - Angioedema [None]
  - Anaphylactic reaction [None]
  - Loss of consciousness [None]
  - Swollen tongue [None]
  - Hypotension [None]
  - Nausea [None]
  - Tachycardia [None]
  - Leukocytosis [None]
  - Dyspnoea [None]
  - Incoherent [None]
  - Hypothermia [None]
  - Chills [None]
  - Salivary hypersecretion [None]
  - Muscle rigidity [None]

NARRATIVE: CASE EVENT DATE: 20121128
